FAERS Safety Report 21826395 (Version 2)
Quarter: 2023Q1

REPORT INFORMATION
  Report Type: Spontaneous
  Country: CN (occurrence: CN)
  Receive Date: 20230106
  Receipt Date: 20230124
  Transmission Date: 20230417
  Serious: Yes (Other)
  Sender: FDA-Public Use
  Company Number: CN-MACLEODS PHARMACEUTICALS US LTD-MAC2022039084

PATIENT

DRUGS (1)
  1. SILDENAFIL [Suspect]
     Active Substance: SILDENAFIL
     Indication: Erectile dysfunction
     Dosage: 200 MILLIGRAM, QD
     Route: 065

REACTIONS (5)
  - Retinal toxicity [Not Recovered/Not Resolved]
  - Visual impairment [Not Recovered/Not Resolved]
  - Retinal injury [Not Recovered/Not Resolved]
  - Overdose [Not Recovered/Not Resolved]
  - Visual field defect [Not Recovered/Not Resolved]
